FAERS Safety Report 16892546 (Version 12)
Quarter: 2021Q1

REPORT INFORMATION
  Report Type: Spontaneous
  Country: US (occurrence: US)
  Receive Date: 20191007
  Receipt Date: 20210205
  Transmission Date: 20210419
  Serious: Yes (Death, Hospitalization, Other)
  Sender: FDA-Public Use
  Company Number: US-PFIZER INC-2019385506

PATIENT
  Age: 90 Year
  Sex: Male
  Weight: 67.22 kg

DRUGS (5)
  1. VYNDAQEL [Suspect]
     Active Substance: TAFAMIDIS MEGLUMINE
     Dosage: 80 MG, UNK
  2. VYNDAQEL [Suspect]
     Active Substance: TAFAMIDIS MEGLUMINE
     Dosage: UNK
  3. VYNDAQEL [Suspect]
     Active Substance: TAFAMIDIS MEGLUMINE
     Dosage: UNK
  4. VYNDAQEL [Suspect]
     Active Substance: TAFAMIDIS MEGLUMINE
     Dosage: 80 MG, DAILY (TAKE 4 AT THE SAME TIME DAILY)
     Route: 048
  5. VYNDAQEL [Suspect]
     Active Substance: TAFAMIDIS MEGLUMINE
     Indication: CARDIAC AMYLOIDOSIS
     Dosage: 80 MG, 1X/DAY (20MG CAPSULE, 4 CAPSULES ONCE DAILY BY MOUTH)
     Route: 048

REACTIONS (24)
  - Eye disorder [Unknown]
  - Eating disorder [Unknown]
  - Pneumonia [Unknown]
  - Cardiac disorder [Unknown]
  - Heart rate decreased [Unknown]
  - Angiopathy [Unknown]
  - Product size issue [Unknown]
  - Dyspnoea [Unknown]
  - Fall [Unknown]
  - Swelling face [Unknown]
  - Pain in extremity [Recovering/Resolving]
  - Loss of consciousness [Unknown]
  - Death [Fatal]
  - Hypotension [Unknown]
  - Product storage error [Unknown]
  - Haemorrhage [Unknown]
  - Femur fracture [Unknown]
  - Intentional product use issue [Unknown]
  - Poor quality product administered [Unknown]
  - Walking disability [Unknown]
  - Erythema [Recovering/Resolving]
  - Dysstasia [Recovering/Resolving]
  - Cough [Unknown]
  - Head injury [Unknown]

NARRATIVE: CASE EVENT DATE: 20191203
